FAERS Safety Report 20322696 (Version 1)
Quarter: 2022Q1

REPORT INFORMATION
  Report Type: Spontaneous
  Country: US (occurrence: US)
  Receive Date: 20220111
  Receipt Date: 20220111
  Transmission Date: 20220423
  Serious: No
  Sender: FDA-Public Use
  Company Number: US-ViiV Healthcare Limited-73726

PATIENT
  Sex: Male

DRUGS (2)
  1. DOVATO [Suspect]
     Active Substance: DOLUTEGRAVIR SODIUM\LAMIVUDINE
     Indication: Product used for unknown indication
     Dosage: UNK
  2. FUZEON [Suspect]
     Active Substance: ENFUVIRTIDE
     Indication: Product used for unknown indication
     Dosage: UNK

REACTIONS (7)
  - Injection site pain [Not Recovered/Not Resolved]
  - Gastritis [Unknown]
  - Inflammation [Unknown]
  - Scar [Unknown]
  - Pain in extremity [Unknown]
  - Abdominal pain upper [Unknown]
  - Musculoskeletal pain [Unknown]
